FAERS Safety Report 5685872-5 (Version None)
Quarter: 2008Q1

REPORT INFORMATION
  Report Type: 
  Country: None (occurrence: None)
  Receive Date: 20080328
  Receipt Date: 20070912
  Transmission Date: 20080703
  Serious: No
  Sender: FDA-Public Use
  Company Number: US-BAYER-US-2007-034493

PATIENT
  Age: 21 Year
  Sex: Female
  Weight: 89 kg

DRUGS (3)
  1. MIRENA [Suspect]
     Indication: CONTRACEPTION
     Route: 015
     Dates: start: 20070801
  2. CITALOPRAM [Concomitant]
     Indication: ANXIETY
     Dosage: UNIT DOSE: 20 MG
  3. FLINTSTONES [Concomitant]

REACTIONS (5)
  - ABDOMINAL PAIN [None]
  - DYSPAREUNIA [None]
  - LIBIDO DECREASED [None]
  - METRORRHAGIA [None]
  - PELVIC PAIN [None]
